FAERS Safety Report 7051214 (Version 48)
Quarter: 2019Q1

REPORT INFORMATION
  Report Type: Report from Study
  Country: CA (occurrence: CA)
  Receive Date: 20090715
  Receipt Date: 20190206
  Transmission Date: 20190418
  Serious: Yes (Hospitalization, Other)
  Sender: FDA-Public Use
  Company Number: PHHY2009CA28497

PATIENT
  Age: 73 Year
  Sex: Female

DRUGS (22)
  1. CELEXA [Concomitant]
     Active Substance: CITALOPRAM HYDROBROMIDE
     Indication: PRODUCT USED FOR UNKNOWN INDICATION
     Dosage: UNK
     Route: 065
  2. MAGNESIUM [Concomitant]
     Active Substance: MAGNESIUM
     Indication: PRODUCT USED FOR UNKNOWN INDICATION
     Route: 065
  3. EXJADE [Suspect]
     Active Substance: DEFERASIROX
     Dosage: 2500 MG, QD
     Route: 048
     Dates: start: 20090616, end: 20140105
  4. ENTOCORT [Concomitant]
     Active Substance: BUDESONIDE
     Indication: COLITIS
     Dosage: 3 DF, (3 CAPSULES FOR 8 WEEKS)
     Route: 065
     Dates: start: 20171212
  5. EXJADE [Suspect]
     Active Substance: DEFERASIROX
     Dosage: 2000 MG, QD
     Route: 048
     Dates: start: 20090101
  6. DITROPAN [Concomitant]
     Active Substance: OXYBUTYNIN CHLORIDE
     Indication: CYSTITIS
     Dosage: 10 MG, BID
     Route: 048
  7. PHENOBARBITAL. [Concomitant]
     Active Substance: PHENOBARBITAL
     Indication: BRAIN NEOPLASM
     Dosage: 120 MG, BID
     Route: 048
  8. LASIX [Concomitant]
     Active Substance: FUROSEMIDE
     Indication: PRODUCT USED FOR UNKNOWN INDICATION
     Dosage: 40 MG, QD
     Route: 065
  9. EXJADE [Suspect]
     Active Substance: DEFERASIROX
     Dosage: 2000 MG, QD
     Route: 048
  10. EXJADE [Suspect]
     Active Substance: DEFERASIROX
     Dosage: 1000 MG, QOD (2 PILLS 500 MG EACH)
     Route: 048
     Dates: start: 2009
  11. CARVEDILOL. [Concomitant]
     Active Substance: CARVEDILOL
     Indication: PRODUCT USED FOR UNKNOWN INDICATION
     Route: 065
  12. EXJADE [Suspect]
     Active Substance: DEFERASIROX
     Dosage: 400 MG, QD
     Route: 048
  13. EXJADE [Suspect]
     Active Substance: DEFERASIROX
     Dosage: 1000 MG, TIW
     Route: 048
     Dates: start: 2009
  14. EXJADE [Suspect]
     Active Substance: DEFERASIROX
     Indication: MYELODYSPLASTIC SYNDROME
     Dosage: 2000 MG, QD
     Route: 048
     Dates: start: 200802
  15. EXJADE [Suspect]
     Active Substance: DEFERASIROX
     Dosage: 2000 MG, QD
     Route: 048
  16. EXJADE [Suspect]
     Active Substance: DEFERASIROX
     Dosage: 2000 MG, QD
     Route: 048
  17. VITAMIN B12 [Concomitant]
     Active Substance: CYANOCOBALAMIN
     Indication: PRODUCT USED FOR UNKNOWN INDICATION
     Dosage: 1000 MG, UNK
     Route: 065
  18. EXJADE [Suspect]
     Active Substance: DEFERASIROX
     Dosage: 1500 MG, QD
     Route: 048
  19. JADENU [Suspect]
     Active Substance: DEFERASIROX
     Dosage: 360 MG, QOD (1 PILL EVERY SECOND DAY)
     Route: 048
     Dates: start: 20171219
  20. EXJADE [Suspect]
     Active Substance: DEFERASIROX
     Dosage: 1500 MG, QOD
     Route: 048
  21. JADENU [Suspect]
     Active Substance: DEFERASIROX
     Indication: IRON OVERLOAD
     Dosage: 720 MG, QD (360 X 2 MG)
     Route: 048
  22. CITALOPRAM [Concomitant]
     Active Substance: CITALOPRAM HYDROBROMIDE
     Indication: PRODUCT USED FOR UNKNOWN INDICATION
     Route: 065

REACTIONS (56)
  - Delirium [Recovering/Resolving]
  - Constipation [Unknown]
  - Intervertebral disc disorder [Unknown]
  - Gastrointestinal disorder [Recovered/Resolved]
  - Pneumonia [Recovered/Resolved]
  - Spinal pain [Unknown]
  - Blood disorder [Unknown]
  - Mucosal inflammation [Unknown]
  - Mass [Recovering/Resolving]
  - Dehydration [Recovering/Resolving]
  - Drug ineffective [Unknown]
  - Nerve injury [Recovered/Resolved]
  - Blood iron increased [Unknown]
  - Feeding disorder [Unknown]
  - Faeces discoloured [Unknown]
  - Hypoaesthesia [Not Recovered/Not Resolved]
  - Rhinorrhoea [Recovered/Resolved]
  - Weight decreased [Unknown]
  - Gait disturbance [Recovering/Resolving]
  - Dysphonia [Unknown]
  - Gait inability [Unknown]
  - Anal incontinence [Unknown]
  - Influenza [Unknown]
  - Colitis [Unknown]
  - Peripheral swelling [Unknown]
  - Abdominal pain upper [Unknown]
  - Urinary tract infection [Recovered/Resolved]
  - Pneumonia [Recovered/Resolved]
  - Bronchitis [Unknown]
  - Drug intolerance [Recovering/Resolving]
  - Dysstasia [Unknown]
  - Red blood cell count decreased [Unknown]
  - Haemoglobin decreased [Unknown]
  - Fatigue [Recovering/Resolving]
  - Bacterial infection [Unknown]
  - Diarrhoea [Recovered/Resolved]
  - Herpes zoster [Recovered/Resolved]
  - Pain of skin [Recovering/Resolving]
  - Accident [Unknown]
  - Herpes zoster [Unknown]
  - Diarrhoea [Not Recovered/Not Resolved]
  - Small intestinal obstruction [Recovering/Resolving]
  - Anticonvulsant drug level above therapeutic [Unknown]
  - Joint swelling [Unknown]
  - Cystitis [Recovering/Resolving]
  - Serum ferritin decreased [Recovering/Resolving]
  - Back pain [Unknown]
  - Lower respiratory tract inflammation [Unknown]
  - Gastroenteritis viral [Recovered/Resolved]
  - Wound secretion [Unknown]
  - Influenza [Recovered/Resolved]
  - Scar [Recovering/Resolving]
  - Post procedural diarrhoea [Unknown]
  - Dyspepsia [Unknown]
  - Dizziness [Unknown]
  - Inappropriate schedule of product administration [Unknown]

NARRATIVE: CASE EVENT DATE: 20140105
